FAERS Safety Report 19725131 (Version 1)
Quarter: 2021Q3

REPORT INFORMATION
  Report Type: Spontaneous
  Country: GB (occurrence: GB)
  Receive Date: 20210820
  Receipt Date: 20210820
  Transmission Date: 20211014
  Serious: Yes (Other)
  Sender: FDA-Public Use
  Company Number: GB-DRREDDYS-SPO/UKI/21/0138990

PATIENT
  Age: 22 Year
  Sex: Female
  Weight: 70.76 kg

DRUGS (1)
  1. FLUOXETINE [Suspect]
     Active Substance: FLUOXETINE HYDROCHLORIDE
     Indication: DEPRESSION
     Route: 048
     Dates: start: 20210803

REACTIONS (2)
  - Irritability [Not Recovered/Not Resolved]
  - Hyperacusis [Recovering/Resolving]

NARRATIVE: CASE EVENT DATE: 20210808
